FAERS Safety Report 8900652 (Version 1)
Quarter: 2012Q4

REPORT INFORMATION
  Report Type: 
  Country: FR (occurrence: FR)
  Receive Date: 20121109
  Receipt Date: 20121109
  Transmission Date: 20130627
  Serious: Yes (Hospitalization)
  Sender: FDA-Public Use
  Company Number: FR-009507513-1211FRA003582

PATIENT
  Age: 44 Year
  Sex: Female

DRUGS (11)
  1. INVANZ [Suspect]
     Dosage: UNK
     Route: 042
     Dates: start: 20120612, end: 20120623
  2. CILASTATIN SODIUM\IMIPENEM [Suspect]
     Dosage: UNK
     Dates: start: 20120706, end: 20120707
  3. MEROPENEM [Concomitant]
     Dosage: 1 g, qd
     Route: 042
     Dates: start: 20120624, end: 20120630
  4. CYMEVAN CAPSULES [Concomitant]
     Dosage: UNK
     Dates: start: 20120612, end: 20120623
  5. VELCADE [Concomitant]
     Dosage: UNK
     Dates: start: 20120620, end: 20120623
  6. ENDOXAN [Concomitant]
     Dosage: UNK
     Dates: start: 20120620, end: 20120623
  7. UROMITEXAN [Concomitant]
     Dosage: UNK
     Dates: start: 20120620
  8. DEXAMETHASONE [Concomitant]
     Dosage: UNK
     Dates: end: 20120623
  9. SPIRULINE [Concomitant]
  10. EUPRESSYL [Concomitant]
     Dosage: UNK
     Dates: start: 20120702, end: 20120711
  11. INEXIUM [Concomitant]
     Dosage: UNK
     Dates: start: 20120703, end: 20120710

REACTIONS (5)
  - Rash maculo-papular [Recovered/Resolved]
  - Cross sensitivity reaction [Recovered/Resolved]
  - Cholestasis [None]
  - Eczema [None]
  - Toxic skin eruption [None]
